FAERS Safety Report 4632332-6 (Version None)
Quarter: 2005Q2

REPORT INFORMATION
  Report Type: 
  Country: None (occurrence: None)
  Receive Date: 20050401
  Receipt Date: 20040518
  Transmission Date: 20051028
  Serious: No
  Sender: FDA-Public Use
  Company Number: 04P-163-0261557-00

PATIENT
  Age: 41 Year
  Sex: Female

DRUGS (6)
  1. DEPAKOTE [Suspect]
     Indication: BIPOLAR DISORDER
     Dosage: PER ORAL
     Route: 048
  2. PEGASYS [Suspect]
     Indication: HEPATITIS C
     Dosage: INJECTION
     Dates: start: 20040416
  3. SERTRALINE HYDROCHLORIDE [Concomitant]
  4. BUSPIRONE HCL [Concomitant]
  5. LACTULOSE [Concomitant]
  6. RIBAVIRIN [Concomitant]

REACTIONS (3)
  - HAEMOGLOBIN DECREASED [None]
  - PLATELET COUNT DECREASED [None]
  - VAGINAL HAEMORRHAGE [None]
